FAERS Safety Report 23914250 (Version 1)
Quarter: 2024Q2

REPORT INFORMATION
  Report Type: Spontaneous
  Country: CN (occurrence: CN)
  Receive Date: 20240529
  Receipt Date: 20240529
  Transmission Date: 20240716
  Serious: Yes (Hospitalization, Other)
  Sender: FDA-Public Use
  Company Number: CN-PFIZER INC-PV202400068592

PATIENT
  Age: 59 Year
  Sex: Male

DRUGS (1)
  1. CYTARABINE [Suspect]
     Active Substance: CYTARABINE
     Indication: Lymphoma
     Dosage: 2.32 G, 2X/DAY
     Route: 041
     Dates: start: 20240504, end: 20240505

REACTIONS (8)
  - Agranulocytosis [Recovering/Resolving]
  - Nausea [Recovered/Resolved]
  - Discomfort [Recovering/Resolving]
  - Vomiting [Recovered/Resolved]
  - Platelet count decreased [Recovering/Resolving]
  - White blood cell count decreased [Recovered/Resolved]
  - Haemoglobin decreased [Not Recovered/Not Resolved]
  - Neutrophil count decreased [Recovering/Resolving]

NARRATIVE: CASE EVENT DATE: 20240506
